FAERS Safety Report 10674030 (Version 3)
Quarter: 2015Q1

REPORT INFORMATION
  Report Type: Spontaneous
  Country: US (occurrence: None)
  Receive Date: 20141222
  Receipt Date: 20150325
  Transmission Date: 20150720
  Serious: Yes (Other)
  Sender: FDA-Public Use
  Company Number: 2014IHE00707

PATIENT
  Age: 84 Year
  Sex: Male
  Weight: 79.4 kg

DRUGS (6)
  1. CIPRO [Suspect]
     Active Substance: CIPROFLOXACIN HYDROCHLORIDE
     Indication: URINARY TRACT INFECTION
  2. AZO [Suspect]
     Active Substance: PHENAZOPYRIDINE HYDROCHLORIDE
     Indication: URINARY TRACT INFECTION
     Dosage: 2 TABLETS, 2X/DAY, ORAL
     Route: 048
     Dates: start: 20141129, end: 20141129
  3. HYDROCHLOROTHIAZIDE. [Concomitant]
     Active Substance: HYDROCHLOROTHIAZIDE
  4. SIMVASTATIN. [Concomitant]
     Active Substance: SIMVASTATIN
  5. METFORMIN [Concomitant]
     Active Substance: METFORMIN HYDROCHLORIDE
  6. LISINOPRIL. [Concomitant]
     Active Substance: LISINOPRIL

REACTIONS (13)
  - Dyspnoea [None]
  - Cystitis [None]
  - Nephrolithiasis [None]
  - Malaise [None]
  - Tremor [None]
  - Hyperhidrosis [None]
  - Pyrexia [None]
  - Blood lactic acid increased [None]
  - Chills [None]
  - Pleural effusion [None]
  - Asthenia [None]
  - Systemic inflammatory response syndrome [None]
  - Chromaturia [None]

NARRATIVE: CASE EVENT DATE: 20141129
